FAERS Safety Report 13033553 (Version 1)
Quarter: 2016Q4

REPORT INFORMATION
  Report Type: Spontaneous
  Country: FR (occurrence: FR)
  Receive Date: 20161216
  Receipt Date: 20161216
  Transmission Date: 20170207
  Serious: Yes (Other)
  Sender: FDA-Public Use
  Company Number: FR-AMGEN-FRASP2016177759

PATIENT
  Age: 71 Year
  Sex: Male

DRUGS (1)
  1. ENBREL [Suspect]
     Active Substance: ETANERCEPT
     Indication: SPONDYLOARTHROPATHY
     Dosage: 50 MG, UNK
     Route: 058
     Dates: start: 20050728, end: 201603

REACTIONS (2)
  - Paradoxical drug reaction [Recovered/Resolved]
  - Pustular psoriasis [Recovered/Resolved]

NARRATIVE: CASE EVENT DATE: 201603
